FAERS Safety Report 8617012-4 (Version None)
Quarter: 2012Q3

REPORT INFORMATION
  Report Type: 
  Country: None (occurrence: None)
  Receive Date: 20120823
  Receipt Date: 20120813
  Transmission Date: 20120928
  Serious: No
  Sender: FDA-Public Use
  Company Number: US-009507513-1208USA006720

PATIENT

DRUGS (10)
  1. AMBIEN [Concomitant]
  2. PEG-INTRON [Suspect]
     Dosage: 120 MICROGRAM, EVERY EVERY WEEK
     Dates: start: 20120806
  3. XANAX [Concomitant]
  4. PRILOSEC [Concomitant]
  5. PROPRANOLOL HYDROCHLORIDE [Concomitant]
  6. CLONAZEPAM [Concomitant]
  7. PRISTIQ [Concomitant]
  8. RIBASPHERE [Concomitant]
  9. PEG-INTRON [Suspect]
     Dosage: 150 MCG/0.5ML, QW
     Route: 058
  10. SEROQUEL [Concomitant]

REACTIONS (1)
  - LUNG INFECTION [None]
